FAERS Safety Report 6773514-7 (Version None)
Quarter: 2010Q2

REPORT INFORMATION
  Report Type: 
  Country: None (occurrence: None)
  Receive Date: 20100616
  Receipt Date: 20100607
  Transmission Date: 20101027
  Serious: No
  Sender: FDA-Public Use
  Company Number: US-ABBOTT-10P-163-0650232-00

PATIENT
  Age: 51 Year
  Sex: Male
  Weight: 100.33 kg

DRUGS (4)
  1. TRILIPIX [Suspect]
     Indication: HYPERLIPIDAEMIA
     Dates: start: 20100208, end: 20100511
  2. LISINOPRIL [Concomitant]
     Indication: HYPERTENSION
  3. STRATTERA [Concomitant]
     Indication: ATTENTION DEFICIT/HYPERACTIVITY DISORDER
  4. STRATTERA [Concomitant]

REACTIONS (1)
  - BLOOD CREATININE INCREASED [None]
